FAERS Safety Report 9340289 (Version 2)
Quarter: 2013Q3

REPORT INFORMATION
  Report Type: Spontaneous
  Country: NO (occurrence: None)
  Receive Date: 20130605
  Receipt Date: 20130911
  Transmission Date: 20140515
  Serious: Yes (Hospitalization)
  Sender: FDA-Public Use
  Company Number: ACO_36592_2013

PATIENT
  Age: 49 Year
  Sex: Male

DRUGS (4)
  1. FAMPYRA (DALFAMPRIDINE) TABLET, 10MG [Suspect]
     Indication: PRODUCT USED FOR UNKNOWN INDICATION
     Route: 048
     Dates: start: 20130320, end: 20130430
  2. NOVORAPID (INSULIN ASPART) [Concomitant]
  3. TASIGNA (NILOTINIB HYDROCHLORIDE) [Concomitant]
  4. COPAXONE (GLATIRAMER ACETATE) [Concomitant]

REACTIONS (1)
  - Convulsion [None]
